FAERS Safety Report 13405809 (Version 10)
Quarter: 2018Q2

REPORT INFORMATION
  Report Type: Spontaneous
  Country: US (occurrence: US)
  Receive Date: 20170405
  Receipt Date: 20180517
  Transmission Date: 20180711
  Serious: Yes (Other)
  Sender: FDA-Public Use
  Company Number: US-PFIZER INC-2017145600

PATIENT
  Age: 59 Year
  Sex: Female

DRUGS (3)
  1. XALKORI [Suspect]
     Active Substance: CRIZOTINIB
     Indication: LUNG NEOPLASM MALIGNANT
     Dosage: 500 MG, 2X/DAY
     Dates: start: 201512
  2. XALKORI [Suspect]
     Active Substance: CRIZOTINIB
     Dosage: 500 MG, 2X/DAY
  3. XALKORI [Suspect]
     Active Substance: CRIZOTINIB
     Dosage: 250 MG, 2X/DAY
     Route: 048
     Dates: start: 201612

REACTIONS (11)
  - Seizure [Recovered/Resolved]
  - Vomiting [Recovered/Resolved]
  - Hepatic cyst [Not Recovered/Not Resolved]
  - Neoplasm progression [Unknown]
  - Nausea [Recovered/Resolved]
  - Amnesia [Not Recovered/Not Resolved]
  - Dyspnoea [Unknown]
  - Myocardial strain [Unknown]
  - Abdominal discomfort [Unknown]
  - Drug dose omission [Unknown]
  - Diarrhoea [Unknown]
